FAERS Safety Report 24905698 (Version 1)
Quarter: 2025Q1

REPORT INFORMATION
  Report Type: Report from Study
  Country: US (occurrence: US)
  Receive Date: 20250130
  Receipt Date: 20250130
  Transmission Date: 20250408
  Serious: No
  Sender: HRA PHARMA
  Company Number: US-ORG100014127-2024000245

PATIENT
  Age: 64 Year
  Sex: Female

DRUGS (7)
  1. METOPIRONE [Suspect]
     Active Substance: METYRAPONE
     Indication: Adrenal gland cancer
     Dates: start: 202408, end: 202408
  2. LYSODREN [Concomitant]
     Active Substance: MITOTANE
     Indication: Adrenal gland cancer
     Dosage: 2 TABLETS DAILY FOR 2 DAYS, THEN INCREASED BY 1 TABLET EVERY THIRD DAY TO REACH 8 TABLETS PER DAY
     Route: 048
     Dates: start: 20240424
  3. LYSODREN [Concomitant]
     Active Substance: MITOTANE
     Indication: Adrenal gland cancer
     Dosage: 8 TABLETS PER DAY
     Route: 048
     Dates: end: 202408
  4. AMLODIPINE TAB 5MG [Concomitant]
     Indication: Product used for unknown indication
  5. ELIQUIS [Concomitant]
     Active Substance: APIXABAN
     Indication: Product used for unknown indication
  6. HYDROXYZ HCL TAB 25MG [Concomitant]
     Indication: Product used for unknown indication
  7. TRAMADOL HCL TAB 50MG [Concomitant]
     Indication: Product used for unknown indication

REACTIONS (1)
  - Off label use [Recovered/Resolved]

NARRATIVE: CASE EVENT DATE: 20240801
